FAERS Safety Report 10590293 (Version 3)
Quarter: 2015Q2

REPORT INFORMATION
  Report Type: Report from Study
  Country: FR (occurrence: FR)
  Receive Date: 20141118
  Receipt Date: 20150508
  Transmission Date: 20150821
  Serious: Yes (Life-Threatening, Hospitalization, Other)
  Sender: FDA-Public Use
  Company Number: FR-009507513-1411FRA002302

PATIENT
  Age: 77 Year
  Sex: Female
  Weight: 46.5 kg

DRUGS (4)
  1. AZACITIDINE. [Suspect]
     Active Substance: AZACITIDINE
     Dosage: 50 MG/M2, UNK
     Route: 058
     Dates: start: 20150309, end: 20150317
  2. VORINOSTAT [Suspect]
     Active Substance: VORINOSTAT
     Indication: MYELODYSPLASTIC SYNDROME
     Dosage: 600 MG, QD
     Route: 048
     Dates: start: 20141001, end: 20141007
  3. VORINOSTAT [Suspect]
     Active Substance: VORINOSTAT
     Dosage: 200 MG, UNK
     Route: 048
     Dates: start: 20150311, end: 20150317
  4. AZACITIDINE. [Suspect]
     Active Substance: AZACITIDINE
     Indication: MYELODYSPLASTIC SYNDROME
     Dosage: 75 MG/M2, QD, CYCLE 1
     Route: 058
     Dates: start: 20140929, end: 20141007

REACTIONS (3)
  - Pancytopenia [Unknown]
  - Sepsis [Recovered/Resolved]
  - Escherichia sepsis [Recovered/Resolved]

NARRATIVE: CASE EVENT DATE: 20141003
